FAERS Safety Report 13409047 (Version 4)
Quarter: 2025Q1

REPORT INFORMATION
  Report Type: Spontaneous
  Country: US (occurrence: US)
  Receive Date: 20170406
  Receipt Date: 20250307
  Transmission Date: 20250408
  Serious: Yes (Other)
  Sender: JOHNSON AND JOHNSON
  Company Number: US-JNJFOC-20170112751

PATIENT
  Age: 10 Year
  Sex: Male

DRUGS (8)
  1. RISPERDAL [Suspect]
     Active Substance: RISPERIDONE
     Indication: Affective disorder
     Route: 048
     Dates: start: 20060206, end: 20060309
  2. RISPERDAL [Suspect]
     Active Substance: RISPERIDONE
     Indication: Weight increased
     Route: 048
     Dates: start: 20120207, end: 20130806
  3. RISPERDAL [Suspect]
     Active Substance: RISPERIDONE
     Indication: Learning disability
     Route: 048
     Dates: start: 2005
  4. RISPERDAL [Suspect]
     Active Substance: RISPERIDONE
     Indication: Bipolar disorder
  5. RISPERIDONE [Suspect]
     Active Substance: RISPERIDONE
     Indication: Affective disorder
     Route: 048
     Dates: start: 2012, end: 2013
  6. RISPERIDONE [Suspect]
     Active Substance: RISPERIDONE
     Indication: Weight increased
  7. RISPERIDONE [Suspect]
     Active Substance: RISPERIDONE
     Indication: Learning disability
  8. RISPERIDONE [Suspect]
     Active Substance: RISPERIDONE
     Indication: Bipolar disorder

REACTIONS (6)
  - Dystonia [Unknown]
  - Gynaecomastia [Unknown]
  - Vision blurred [Unknown]
  - Weight increased [Unknown]
  - Emotional distress [Unknown]
  - Drug ineffective [Unknown]

NARRATIVE: CASE EVENT DATE: 20060309
